FAERS Safety Report 24303973 (Version 1)
Quarter: 2024Q3

REPORT INFORMATION
  Report Type: Spontaneous
  Country: JP (occurrence: None)
  Receive Date: 20240910
  Receipt Date: 20240910
  Transmission Date: 20241016
  Serious: Yes (Death, Hospitalization, Other)
  Sender: ASTRAZENECA
  Company Number: 2006AP02282

PATIENT
  Age: 75 Year
  Sex: Female
  Weight: 58 kg

DRUGS (17)
  1. CRESTOR [Suspect]
     Active Substance: ROSUVASTATIN CALCIUM
     Indication: Hyperlipidaemia
     Route: 048
     Dates: start: 20060427, end: 20060506
  2. DIOVAN [Suspect]
     Active Substance: VALSARTAN
     Indication: Product used for unknown indication
     Dosage: 80 MILLIGRAM, 1/DAY
     Route: 048
     Dates: start: 20051209, end: 20060506
  3. BENIDIPINE HYDROCHLORIDE [Concomitant]
     Active Substance: BENIDIPINE HYDROCHLORIDE
     Indication: Hypertension
     Dosage: 8 MILLIGRAM8.0MG UNKNOWN
     Route: 048
  4. GASTER [Concomitant]
     Active Substance: FAMOTIDINE
     Indication: Asthma
     Dosage: 10.0MG UNKNOWN
     Route: 048
     Dates: start: 20040813
  5. GASTER [Concomitant]
     Active Substance: FAMOTIDINE
     Indication: Gastritis
     Dosage: 10.0MG UNKNOWN
     Route: 048
     Dates: start: 20040813
  6. GASTER [Concomitant]
     Active Substance: FAMOTIDINE
     Indication: Asthma
     Dosage: 20 MILLIGRAM20.0MG UNKNOWN
     Route: 048
     Dates: start: 20040813
  7. GASTER [Concomitant]
     Active Substance: FAMOTIDINE
     Indication: Gastritis
     Dosage: 20 MILLIGRAM20.0MG UNKNOWN
     Route: 048
     Dates: start: 20040813
  8. PRANLUKAST [Concomitant]
     Active Substance: PRANLUKAST
     Indication: Asthma
     Dosage: 450 MILLIGRAM450.0MG UNKNOWN
     Route: 048
     Dates: start: 20040813, end: 20060506
  9. ETODOLAC [Concomitant]
     Active Substance: ETODOLAC
     Indication: Rheumatic disorder
     Dosage: 400 MILLIGRAM400.0MG UNKNOWN
     Route: 048
     Dates: start: 20040813
  10. GASLON [Concomitant]
     Active Substance: IRSOGLADINE MALEATE
     Route: 048
  11. MITIGLINIDE [Concomitant]
     Active Substance: MITIGLINIDE
  12. MAGNESIUM OXIDE [Concomitant]
     Active Substance: MAGNESIUM OXIDE
  13. CLARITIN [Concomitant]
     Active Substance: LORATADINE
     Route: 048
  14. HOKUNALIN [TULOBUTEROL HYDROCHLORIDE] [Concomitant]
     Route: 062
  15. AMITRIPTYLINE HYDROCHLORIDE [Concomitant]
     Active Substance: AMITRIPTYLINE HYDROCHLORIDE
     Indication: Persistent depressive disorder
     Dosage: 10.0MG UNKNOWN
     Route: 048
     Dates: start: 20040813, end: 20060506
  16. LEVOMEPROMAZINE [Concomitant]
     Active Substance: LEVOMEPROMAZINE
     Indication: Persistent depressive disorder
     Dosage: 10.0MG UNKNOWN
     Route: 048
     Dates: start: 20040813, end: 20060506
  17. ETHYL LOFLAZEPATE [Concomitant]
     Active Substance: ETHYL LOFLAZEPATE
     Indication: Persistent depressive disorder
     Dosage: 2.0MG UNKNOWN
     Route: 048
     Dates: start: 20040813, end: 20060506

REACTIONS (36)
  - Acute kidney injury [Fatal]
  - Blood creatinine increased [Fatal]
  - Blood potassium increased [Fatal]
  - Blood sodium decreased [Fatal]
  - Generalised oedema [Fatal]
  - Pleural effusion [Fatal]
  - Fall [Fatal]
  - Head discomfort [Fatal]
  - Pelvic fracture [Fatal]
  - Blood cholesterol increased [Fatal]
  - Pulmonary oedema [Fatal]
  - Blood albumin decreased [Fatal]
  - Dialysis [Fatal]
  - Decreased appetite [Fatal]
  - Weight decreased [Fatal]
  - Circulatory collapse [Fatal]
  - Respiratory failure [Fatal]
  - Tubulointerstitial nephritis [Fatal]
  - Multiple organ dysfunction syndrome [Fatal]
  - Nephrotic syndrome [Fatal]
  - Disseminated intravascular coagulation [Fatal]
  - Staphylococcal infection [Fatal]
  - Cerebral infarction [Fatal]
  - Ascites [Fatal]
  - Hypoxia [Fatal]
  - Volume blood decreased [Fatal]
  - Hypotension [Fatal]
  - Cardiac failure [Fatal]
  - Asthenia [Fatal]
  - Pyrexia [Fatal]
  - General physical health deterioration [Fatal]
  - Blood culture positive [Fatal]
  - White blood cell count increased [Fatal]
  - Somnolence [Fatal]
  - Blood urea increased [Fatal]
  - Endotoxic shock [Fatal]

NARRATIVE: CASE EVENT DATE: 20060406
